FAERS Safety Report 24987451 (Version 1)
Quarter: 2025Q1

REPORT INFORMATION
  Report Type: Spontaneous
  Country: US (occurrence: US)
  Receive Date: 20250219
  Receipt Date: 20250219
  Transmission Date: 20250408
  Serious: No
  Sender: Haleon PLC
  Company Number: US-HALEON-2228949

PATIENT

DRUGS (1)
  1. SENSODYNE PRONAMEL FRESH BREATH [Suspect]
     Active Substance: POTASSIUM NITRATE\SODIUM FLUORIDE
     Indication: Product used for unknown indication

REACTIONS (4)
  - Dermatitis [Unknown]
  - Lip exfoliation [Unknown]
  - Skin exfoliation [Unknown]
  - Lip dry [Unknown]
